FAERS Safety Report 23673803 (Version 1)
Quarter: 2024Q1

REPORT INFORMATION
  Report Type: Spontaneous
  Country: FR (occurrence: FR)
  Receive Date: 20240326
  Receipt Date: 20240326
  Transmission Date: 20240410
  Serious: No
  Sender: FDA-Public Use
  Company Number: FR-TOLMAR, INC.-24FR047382

PATIENT
  Sex: Male

DRUGS (1)
  1. ELIGARD [Suspect]
     Active Substance: LEUPROLIDE ACETATE
     Indication: Prostate cancer
     Dosage: 22.5 MILLIGRAM
     Dates: start: 20240301

REACTIONS (3)
  - Intercepted product preparation error [Unknown]
  - Product packaging quantity issue [Unknown]
  - Syringe issue [Unknown]

NARRATIVE: CASE EVENT DATE: 20240301
